FAERS Safety Report 9046161 (Version 2)
Quarter: 2013Q3

REPORT INFORMATION
  Report Type: Spontaneous
  Country: DE (occurrence: DE)
  Receive Date: 20130201
  Receipt Date: 20130702
  Transmission Date: 20140515
  Serious: Yes (Hospitalization, Disabling)
  Sender: FDA-Public Use
  Company Number: PHHY2013DE009178

PATIENT
  Age: 69 Year
  Sex: Male
  Weight: 92 kg

DRUGS (4)
  1. ACLASTA [Suspect]
     Indication: OSTEOPOROSIS
     Dosage: 5 MG ONCE YEARLY
     Route: 042
     Dates: start: 201107
  2. ACLASTA [Suspect]
     Dosage: 5 MG ONCE YEARLY
     Route: 042
     Dates: start: 201207
  3. CALCIMAGON-D 3 [Concomitant]
     Dosage: 1 DF, QD
  4. IBUPROFEN [Concomitant]
     Dosage: 2-3 DF DAILY

REACTIONS (1)
  - Spinal fracture [Unknown]
